FAERS Safety Report 7956097 (Version 6)
Quarter: 2013Q2

REPORT INFORMATION
  Report Type: Spontaneous
  Country: US (occurrence: US)
  Receive Date: 20110523
  Receipt Date: 20130603
  Transmission Date: 20140414
  Serious: Yes (Life-Threatening, Hospitalization, Congenital Anomaly, Other)
  Sender: FDA-Public Use
  Company Number: US-PFIZER INC-2011105800

PATIENT
  Sex: Male

DRUGS (4)
  1. EFFEXOR XR [Suspect]
     Dosage: 150 MG, 1X/DAY
     Route: 064
     Dates: start: 20091022, end: 20100218
  2. EFFEXOR [Suspect]
     Dosage: 37.5 MG, 2X/DAY
     Route: 064
     Dates: start: 20100112
  3. VENLAFAXINE HCL [Suspect]
     Dosage: UNK
     Route: 064
  4. FLEXERIL [Concomitant]
     Dosage: 10 MG, ONE TABLET AT BED TIME
     Route: 064
     Dates: start: 20091022, end: 20100218

REACTIONS (24)
  - Foetal exposure during pregnancy [Unknown]
  - Coarctation of the aorta [Recovered/Resolved]
  - Pulmonary hypertension [Unknown]
  - Aortic valve incompetence [Unknown]
  - Atrioventricular septal defect [Recovering/Resolving]
  - Ventricular septal defect [Unknown]
  - Atrial septal defect [Unknown]
  - Atrial septal defect [Unknown]
  - Cardiac failure congestive [Recovered/Resolved]
  - Tricuspid valve incompetence [Unknown]
  - Laryngomalacia [Unknown]
  - Tracheomalacia [Unknown]
  - Cardiomegaly [Unknown]
  - Mitral valve incompetence [Unknown]
  - Pulmonary oedema [Unknown]
  - Patent ductus arteriosus [Recovered/Resolved]
  - Aorta hypoplasia [Unknown]
  - Bronchomalacia [Unknown]
  - Failure to thrive [Recovering/Resolving]
  - Pectus carinatum [Unknown]
  - Sinus tachycardia [Unknown]
  - QRS axis abnormal [Unknown]
  - Congenital anomaly [Unknown]
  - Gastrooesophageal reflux disease [Unknown]
